FAERS Safety Report 21619599 (Version 2)
Quarter: 2022Q4

REPORT INFORMATION
  Report Type: Report from Study
  Country: CA (occurrence: CA)
  Receive Date: 20221121
  Receipt Date: 20221215
  Transmission Date: 20230113
  Serious: Yes (Hospitalization, Other)
  Sender: FDA-Public Use
  Company Number: CA-ABBVIE-4207377

PATIENT
  Age: 93 Year
  Sex: Male

DRUGS (1)
  1. LUPRON DEPOT [Suspect]
     Active Substance: LEUPROLIDE ACETATE
     Indication: Prostate cancer
     Route: 030
     Dates: start: 20211211

REACTIONS (2)
  - Seizure [Recovering/Resolving]
  - Palliative care [Not Recovered/Not Resolved]

NARRATIVE: CASE EVENT DATE: 20221105
